FAERS Safety Report 5205047-3 (Version None)
Quarter: 2007Q1

REPORT INFORMATION
  Report Type: 
  Country: None (occurrence: None)
  Receive Date: 20070110
  Receipt Date: 20061011
  Transmission Date: 20070707
  Serious: No
  Sender: FDA-Public Use
  Company Number: US-BRISTOL-MYERS SQUIBB COMPANY-13537964

PATIENT
  Age: 10 Year
  Sex: Female
  Weight: 30 kg

DRUGS (4)
  1. ABILIFY [Suspect]
     Indication: POST-TRAUMATIC STRESS DISORDER
     Dosage: DOSE CURRENTLY INCREASED TO 10 MG.
     Dates: start: 20060921
  2. ABILIFY [Suspect]
     Indication: MAJOR DEPRESSION
     Dosage: DOSE CURRENTLY INCREASED TO 10 MG.
     Dates: start: 20060921
  3. BENADRYL [Concomitant]
  4. ZYPREXA [Concomitant]

REACTIONS (2)
  - COGWHEEL RIGIDITY [None]
  - MUSCULOSKELETAL STIFFNESS [None]
